FAERS Safety Report 4653800-7 (Version None)
Quarter: 2005Q2

REPORT INFORMATION
  Report Type: 
  Country: None (occurrence: None)
  Receive Date: 20050404
  Receipt Date: 20050119
  Transmission Date: 20051028
  Serious: No
  Sender: FDA-Public Use
  Company Number: USA050188799

PATIENT
  Age: 53 Year
  Sex: Female

DRUGS (8)
  1. CYMBALTA [Suspect]
     Indication: DEPRESSION
     Dosage: 60 MG DAY
     Dates: start: 20050111
  2. TARKA [Concomitant]
  3. LORCET-HD [Concomitant]
  4. ALLEGRA D 24 HOUR [Concomitant]
  5. NEXIUM [Concomitant]
  6. LIPITOR [Concomitant]
  7. SINGULAIR (MONTELUKAST) [Concomitant]
  8. XANAX (ALPRAZOLAM DUM) [Concomitant]

REACTIONS (3)
  - FEELING ABNORMAL [None]
  - FEELING JITTERY [None]
  - THIRST [None]
